FAERS Safety Report 6521287-5 (Version None)
Quarter: 2009Q4

REPORT INFORMATION
  Report Type: 
  Country: None (occurrence: None)
  Receive Date: 20091224
  Receipt Date: 20091216
  Transmission Date: 20100525
  Serious: No
  Sender: FDA-Public Use
  Company Number: 20097835

PATIENT
  Sex: Male

DRUGS (2)
  1. LIORESAL [Suspect]
     Indication: MUSCLE SPASTICITY
     Dosage: DAILY, INTRATHECAL
     Route: 037
  2. MORPHINE [Concomitant]

REACTIONS (5)
  - CONFUSIONAL STATE [None]
  - IMPLANT SITE EFFUSION [None]
  - IMPLANT SITE PAIN [None]
  - OVERDOSE [None]
  - SLEEP APNOEA SYNDROME [None]
